FAERS Safety Report 7929678-2 (Version None)
Quarter: 2011Q4

REPORT INFORMATION
  Report Type: 
  Country: None (occurrence: None)
  Receive Date: 20111116
  Receipt Date: 20111031
  Transmission Date: 20120403
  Serious: Yes (Hospitalization, Other)
  Sender: FDA-Public Use
  Company Number: 2011AP002492

PATIENT
  Age: 25 Year
  Sex: Female

DRUGS (5)
  1. CLOMIPRAMINE HCL [Suspect]
     Indication: PRODUCT USED FOR UNKNOWN INDICATION
  2. OLANZAPINE [Suspect]
     Indication: PRODUCT USED FOR UNKNOWN INDICATION
  3. SODIUM HYDROCHLORIDE [Suspect]
     Indication: SALVAGE THERAPY
     Dosage: 6 ML
  4. FLUOXETINE HYDROCHLORIDE [Suspect]
     Indication: PRODUCT USED FOR UNKNOWN INDICATION
  5. DESMOPRESSIN ACETATE [Suspect]
     Indication: PRODUCT USED FOR UNKNOWN INDICATION

REACTIONS (5)
  - SWELLING FACE [None]
  - SOFT TISSUE NECROSIS [None]
  - PERIORBITAL OEDEMA [None]
  - OEDEMA MOUTH [None]
  - CONJUNCTIVAL HAEMORRHAGE [None]
